FAERS Safety Report 6287739-0 (Version None)
Quarter: 2009Q3

REPORT INFORMATION
  Report Type: 
  Country: None (occurrence: None)
  Receive Date: 20090727
  Receipt Date: 20090727
  Transmission Date: 20100115
  Serious: Yes (Other)
  Sender: FDA-Public Use
  Company Number: None

PATIENT
  Age: 78 Year
  Sex: Female
  Weight: 83.9154 kg

DRUGS (1)
  1. BENADRYL [Suspect]
     Indication: MULTIPLE ALLERGIES
     Dosage: .25 MG ONE A DAY PO 1 TO 2 YRS WITH -PFIZER-
     Route: 048

REACTIONS (3)
  - DRUG EFFECT INCREASED [None]
  - PALPITATIONS [None]
  - PRODUCT SUBSTITUTION ISSUE [None]
